FAERS Safety Report 24832170 (Version 4)
Quarter: 2025Q2

REPORT INFORMATION
  Report Type: Report from Study
  Country: CA (occurrence: CA)
  Receive Date: 20250110
  Receipt Date: 20250430
  Transmission Date: 20250717
  Serious: Yes (Other)
  Sender: UCB
  Company Number: CA-UCBSA-2025001373

PATIENT
  Age: 37 Year
  Sex: Female

DRUGS (3)
  1. BIMEKIZUMAB [Suspect]
     Active Substance: BIMEKIZUMAB
     Indication: Hidradenitis
     Dosage: 640 MILLIGRAM, EV 2 WEEKS(QOW) (LOADING DOSE)
     Route: 058
     Dates: start: 20230731
  2. BIMEKIZUMAB [Suspect]
     Active Substance: BIMEKIZUMAB
     Dosage: 320 MILLIGRAM, EV 2 WEEKS(QOW)(12 MONTHS) (MAINTENANCE DOSE)
     Route: 058
  3. BIMEKIZUMAB [Suspect]
     Active Substance: BIMEKIZUMAB
     Dates: start: 20250119

REACTIONS (6)
  - Sinus perforation [Unknown]
  - Tooth disorder [Unknown]
  - Gastroenteritis [Recovering/Resolving]
  - Dental care [Unknown]
  - Product use in unapproved indication [Unknown]
  - Intentional dose omission [Unknown]

NARRATIVE: CASE EVENT DATE: 20230731
